FAERS Safety Report 23345020 (Version 1)
Quarter: 2023Q4

REPORT INFORMATION
  Report Type: Spontaneous
  Country: US (occurrence: US)
  Receive Date: 20231228
  Receipt Date: 20231228
  Transmission Date: 20240109
  Serious: No
  Sender: FDA-Public Use
  Company Number: US-TEVA-VS-3137108

PATIENT
  Age: 53 Year

DRUGS (1)
  1. COPAXONE [Suspect]
     Active Substance: GLATIRAMER ACETATE
     Dosage: DOSAGE: 20 MG/ML AUTHORIZATION NO: 68546-0317-00
     Route: 065

REACTIONS (1)
  - Wheelchair user [Unknown]
